FAERS Safety Report 17611350 (Version 1)
Quarter: 2020Q2

REPORT INFORMATION
  Report Type: Report from Study
  Country: MX (occurrence: MX)
  Receive Date: 20200401
  Receipt Date: 20200401
  Transmission Date: 20200713
  Serious: Yes (Other)
  Sender: FDA-Public Use
  Company Number: MX-UCBSA-2020012359

PATIENT
  Sex: Male

DRUGS (2)
  1. LEVETIRACETAM. [Concomitant]
     Active Substance: LEVETIRACETAM
     Indication: SEIZURE PROPHYLAXIS
     Dosage: 150 MILLIGRAM, 3X/DAY (TID)
     Route: 048
  2. BRIVARACETAM [Suspect]
     Active Substance: BRIVARACETAM
     Indication: SEIZURE
     Dosage: HALF TABLET OF 100MG, 3X/DAY (TID)
     Route: 048

REACTIONS (3)
  - Off label use [Unknown]
  - Seizure [Recovered/Resolved]
  - Drug ineffective [Unknown]
